FAERS Safety Report 4415386-1 (Version None)
Quarter: 2004Q2

REPORT INFORMATION
  Report Type: 
  Country: None (occurrence: None)
  Receive Date: 20040630
  Receipt Date: 20031121
  Transmission Date: 20050107
  Serious: Yes (Other)
  Sender: FDA-Public Use
  Company Number: 2003036039

PATIENT
  Age: 70 Year
  Sex: Female

DRUGS (5)
  1. ZOLOFT [Suspect]
     Indication: DEPRESSION
     Dosage: 50 MG (DAILY)
     Dates: start: 20030501, end: 20030701
  2. LEVOTHYROXINE SODIUM [Concomitant]
  3. METOPROLOL SUCCINATE [Concomitant]
  4. ACETAMINOPHEN [Concomitant]
  5. CLAVULIN (CLAVULANATE POTASSIUM, AMOXICILLIN TRIHYDRATE) [Concomitant]

REACTIONS (7)
  - DIARRHOEA [None]
  - DIZZINESS [None]
  - HYPERHIDROSIS [None]
  - HYPOTENSION [None]
  - MALAISE [None]
  - NAUSEA [None]
  - RECURRING SKIN BOILS [None]
